FAERS Safety Report 5950191-6 (Version None)
Quarter: 2008Q4

REPORT INFORMATION
  Report Type: 
  Country: None (occurrence: None)
  Receive Date: 20081112
  Receipt Date: 20081103
  Transmission Date: 20090506
  Serious: Yes (Hospitalization, Congenital Anomaly)
  Sender: FDA-Public Use
  Company Number: A0728305A

PATIENT
  Sex: Female

DRUGS (5)
  1. PAXIL CR [Suspect]
     Indication: PANIC DISORDER
     Dosage: 25MG UNKNOWN
     Dates: start: 20040301, end: 20050101
  2. PAXIL [Suspect]
     Indication: DEPRESSION
     Dosage: 12.5MG UNKNOWN
     Dates: start: 20040301, end: 20050101
  3. AMBIEN [Concomitant]
  4. FLEXERIL [Concomitant]
  5. VITAMIN TAB [Concomitant]

REACTIONS (2)
  - CATARACT CONGENITAL [None]
  - DRUG EXPOSURE DURING PREGNANCY [None]
